FAERS Safety Report 5292357-7 (Version None)
Quarter: 2007Q2

REPORT INFORMATION
  Report Type: 
  Country: None (occurrence: None)
  Receive Date: 20070410
  Receipt Date: 20070403
  Transmission Date: 20071010
  Serious: Yes (Hospitalization)
  Sender: FDA-Public Use
  Company Number: FR-ROXANE LABORATORIES, INC-2007-BP-04581RO

PATIENT
  Age: 24 Year
  Sex: Female

DRUGS (6)
  1. LITHIUM CARBONATE [Suspect]
     Indication: BIPOLAR DISORDER
     Route: 048
  2. VENLAFAXINE HCL [Suspect]
     Indication: ANTIDEPRESSANT THERAPY
     Route: 048
  3. CARBAMAZEPINE [Suspect]
     Indication: BIPOLAR DISORDER
     Route: 048
  4. DIVALPROEX SODIUM [Suspect]
     Indication: BIPOLAR DISORDER
     Route: 048
  5. LAMOTRIGINE [Suspect]
     Indication: BIPOLAR DISORDER
  6. ORAL CONTRACEPTIVES [Concomitant]
     Indication: CONTRACEPTION
     Route: 048

REACTIONS (5)
  - ALOPECIA [None]
  - HEPATIC FUNCTION ABNORMAL [None]
  - HYPOMANIA [None]
  - MENOMETRORRHAGIA [None]
  - THERAPEUTIC PRODUCT INEFFECTIVE [None]
